FAERS Safety Report 9287667 (Version 1)
Quarter: 2013Q2

REPORT INFORMATION
  Report Type: Report from Study
  Country: BR (occurrence: BR)
  Receive Date: 20130514
  Receipt Date: 20130514
  Transmission Date: 20140414
  Serious: Yes (Hospitalization, Other)
  Sender: FDA-Public Use
  Company Number: PHHY2013BR046916

PATIENT
  Sex: Female
  Weight: 90 kg

DRUGS (2)
  1. TRILEPTAL [Suspect]
     Indication: EPILEPSY
     Dosage: 1 DF, Q12H
     Route: 048
  2. ATLANSIL ^ROEMMERS^ [Concomitant]
     Dosage: 1 DF, DAILY
     Route: 048

REACTIONS (4)
  - Cerebrovascular accident [Recovered/Resolved with Sequelae]
  - Speech disorder [Recovering/Resolving]
  - Hypoaesthesia [Recovering/Resolving]
  - Hypertension [Recovering/Resolving]
